FAERS Safety Report 8993507 (Version 1)
Quarter: 2013Q1

REPORT INFORMATION
  Report Type: Spontaneous
  Country: US (occurrence: US)
  Receive Date: 20130102
  Receipt Date: 20130102
  Transmission Date: 20140127
  Serious: Yes (Other)
  Sender: FDA-Public Use
  Company Number: US-PFIZER INC-2012331632

PATIENT
  Sex: Female

DRUGS (1)
  1. IBUPROFEN [Suspect]
     Route: 065

REACTIONS (2)
  - Visual impairment [Unknown]
  - Convulsion [Unknown]
